FAERS Safety Report 14689142 (Version 1)
Quarter: 2018Q1

REPORT INFORMATION
  Report Type: Spontaneous
  Country: US (occurrence: US)
  Receive Date: 20180327
  Receipt Date: 20180327
  Transmission Date: 20180509
  Serious: Yes (Hospitalization, Other)
  Sender: FDA-Public Use
  Company Number: None

PATIENT
  Age: 59 Year
  Sex: Female
  Weight: 79 kg

DRUGS (1)
  1. INDOCYANINE GREEN. [Suspect]
     Active Substance: INDOCYANINE GREEN
     Indication: ANGIOGRAM
     Dosage: ?          OTHER FREQUENCY:ONE TIME;?
     Route: 042
     Dates: start: 20180219, end: 20180219

REACTIONS (4)
  - Chest discomfort [None]
  - Anxiety [None]
  - Peripheral vascular disorder [None]
  - Dyspnoea [None]

NARRATIVE: CASE EVENT DATE: 20180219
